FAERS Safety Report 21950206 (Version 7)
Quarter: 2025Q2

REPORT INFORMATION
  Report Type: Report from Study
  Country: US (occurrence: US)
  Receive Date: 20230203
  Receipt Date: 20250501
  Transmission Date: 20250717
  Serious: Yes (Other)
  Sender: TAKEDA
  Company Number: US-TAKEDA-2021TUS027699

PATIENT
  Age: 55 Year
  Sex: Female
  Weight: 63 kg

DRUGS (23)
  1. HUMAN IMMUNOGLOBULIN G [Suspect]
     Active Substance: HUMAN IMMUNOGLOBULIN G
     Indication: IgG deficiency
     Dosage: 10 GRAM, 3/MONTH
     Dates: start: 20160917
  2. HUMAN IMMUNOGLOBULIN G [Suspect]
     Active Substance: HUMAN IMMUNOGLOBULIN G
     Indication: Primary immunodeficiency syndrome
     Dosage: 10 GRAM, 3/MONTH
     Dates: start: 20170719
  3. HUMAN IMMUNOGLOBULIN G [Suspect]
     Active Substance: HUMAN IMMUNOGLOBULIN G
  4. ACETAMINOPHEN [Concomitant]
     Active Substance: ACETAMINOPHEN
  5. DIPHENHYDRAMINE [Concomitant]
     Active Substance: DIPHENHYDRAMINE
  6. LIDOCAINE [Concomitant]
     Active Substance: LIDOCAINE
  7. EPINEPHRINE [Concomitant]
     Active Substance: EPINEPHRINE
  8. PREDNISONE [Concomitant]
     Active Substance: PREDNISONE
  9. SINGULAIR [Concomitant]
     Active Substance: MONTELUKAST SODIUM
  10. AZELASTINE HYDROCHLORIDE [Concomitant]
     Active Substance: AZELASTINE HYDROCHLORIDE
  11. ESCITALOPRAM OXALATE [Concomitant]
     Active Substance: ESCITALOPRAM OXALATE
  12. BREO ELLIPTA [Concomitant]
     Active Substance: FLUTICASONE FUROATE\VILANTEROL TRIFENATATE
  13. PROAIR HFA [Concomitant]
     Active Substance: ALBUTEROL SULFATE
  14. ALBUTEROL SULFATE [Concomitant]
     Active Substance: ALBUTEROL SULFATE
  15. CLONAZEPAM [Concomitant]
     Active Substance: CLONAZEPAM
  16. FLUTICASONE PROPIONATE [Concomitant]
     Active Substance: FLUTICASONE PROPIONATE
  17. TRAZODONE [Concomitant]
     Active Substance: TRAZODONE HYDROCHLORIDE
  18. CODEINE SULFATE [Concomitant]
     Active Substance: CODEINE SULFATE
  19. TYLENOL [Concomitant]
     Active Substance: ACETAMINOPHEN
  20. BACTRIM [Concomitant]
     Active Substance: SULFAMETHOXAZOLE\TRIMETHOPRIM
  21. DIPHENHYDRAMINE HYDROCHLORIDE [Concomitant]
     Active Substance: DIPHENHYDRAMINE HYDROCHLORIDE
  22. EVUSHELD [Concomitant]
     Active Substance: CILGAVIMAB\TIXAGEVIMAB
  23. ESCITALOPRAM [Concomitant]
     Active Substance: ESCITALOPRAM OXALATE

REACTIONS (11)
  - Upper limb fracture [Unknown]
  - Urinary tract infection [Unknown]
  - COVID-19 [Unknown]
  - Fall [Unknown]
  - Bursitis [Unknown]
  - Product use issue [Unknown]
  - Insurance issue [Unknown]
  - Viral infection [Unknown]
  - Sinusitis [Unknown]
  - Influenza [Recovering/Resolving]
  - Product dose omission issue [Unknown]

NARRATIVE: CASE EVENT DATE: 20210809
